FAERS Safety Report 6498173-2 (Version None)
Quarter: 2009Q4

REPORT INFORMATION
  Report Type: 
  Country: None (occurrence: None)
  Receive Date: 20091215
  Receipt Date: 20091209
  Transmission Date: 20100525
  Serious: Yes (Death, Hospitalization)
  Sender: FDA-Public Use
  Company Number: NO-JNJFOC-20091202377

PATIENT
  Sex: Male

DRUGS (3)
  1. REMICADE [Suspect]
     Indication: ANKYLOSING SPONDYLITIS
     Route: 042
  2. PARALGIN FORTE [Suspect]
     Indication: ANKYLOSING SPONDYLITIS
     Route: 048
  3. METHOTREXATE [Suspect]
     Indication: ANKYLOSING SPONDYLITIS
     Route: 048

REACTIONS (4)
  - BRONCHOPNEUMONIA [None]
  - HEPATIC FAILURE [None]
  - HEPATIC STEATOSIS [None]
  - NEUROENDOCRINE TUMOUR [None]
